FAERS Safety Report 7757622-X (Version None)
Quarter: 2011Q3

REPORT INFORMATION
  Report Type: 
  Country: None (occurrence: None)
  Receive Date: 20110916
  Receipt Date: 20110913
  Transmission Date: 20111222
  Serious: Yes (Hospitalization, Other)
  Sender: FDA-Public Use
  Company Number: FR-BAYER-2011-085478

PATIENT
  Sex: Female

DRUGS (1)
  1. ESTRADIOL VALERATE/DIENOGEST [Suspect]

REACTIONS (1)
  - ECTOPIC PREGNANCY [None]
